FAERS Safety Report 5735177-9 (Version None)
Quarter: 2008Q2

REPORT INFORMATION
  Report Type: 
  Country: None (occurrence: None)
  Receive Date: 20080512
  Receipt Date: 20080501
  Transmission Date: 20081010
  Serious: Yes (Hospitalization)
  Sender: FDA-Public Use
  Company Number: US-ELI_LILLY_AND_COMPANY-US200803006208

PATIENT
  Sex: Female

DRUGS (6)
  1. FORTEO [Suspect]
     Indication: RESORPTION BONE INCREASED
     Dates: start: 20071211
  2. COREG [Concomitant]
     Indication: CARDIAC DISORDER
     Dosage: 3.125 MG, UNK
  3. VYTORIN [Concomitant]
     Dosage: 10-20
  4. LEVOTHROID [Concomitant]
     Dosage: 125 UG, UNK
  5. HYDROCHLOROTHIAZIDE [Concomitant]
     Dosage: 25 MG, UNK
  6. RYTHMOL [Concomitant]
     Dosage: 150 MG, UNK

REACTIONS (6)
  - BLOOD POTASSIUM DECREASED [None]
  - CARDIAC PACEMAKER MALFUNCTION [None]
  - DIARRHOEA [None]
  - POSTOPERATIVE WOUND INFECTION [None]
  - SINUS BRADYCARDIA [None]
  - VOMITING [None]
